FAERS Safety Report 4948242-0 (Version None)
Quarter: 2006Q1

REPORT INFORMATION
  Report Type: 
  Country: None (occurrence: None)
  Receive Date: 20060310
  Receipt Date: 20060227
  Transmission Date: 20060701
  Serious: Yes (Life-Threatening)
  Sender: FDA-Public Use
  Company Number: 863#3#2006-00004

PATIENT
  Age: 43 Year
  Sex: Female

DRUGS (10)
  1. IDROLAX (MACROGOL) [Suspect]
     Dosage: 10 G
     Route: 048
     Dates: start: 20060131, end: 20060131
  2. NORFLOXACIN [Suspect]
     Indication: URINARY TRACT INFECTION
     Dosage: 800 MG
     Route: 048
     Dates: start: 20060128, end: 20060131
  3. OFLOXACIN [Concomitant]
  4. ACEBUTOLOL (ACEBUTOLOL HYDROCHLORIDE) [Concomitant]
  5. ACETYLSALICYLATE LYSINE [Concomitant]
  6. PRAVASTATIN SODIUM [Concomitant]
  7. ESOMEPRAZOLE [Concomitant]
  8. HEPARIN [Concomitant]
  9. ALPRAZOLAM [Concomitant]
  10. PERINDOPRIL [Concomitant]

REACTIONS (1)
  - ANAPHYLACTIC SHOCK [None]
